FAERS Safety Report 7226833-4 (Version None)
Quarter: 2011Q1

REPORT INFORMATION
  Report Type: 
  Country: None (occurrence: None)
  Receive Date: 20110114
  Receipt Date: 20110105
  Transmission Date: 20110831
  Serious: Yes (Other)
  Sender: FDA-Public Use
  Company Number: US-US-EMD SERONO, INC.-7033147

PATIENT
  Sex: Female

DRUGS (2)
  1. IBUPROFEN [Concomitant]
     Indication: PREMEDICATION
  2. REBIF [Suspect]
     Indication: PRODUCT USED FOR UNKNOWN INDICATION
     Route: 058
     Dates: start: 20101029

REACTIONS (11)
  - BRONCHITIS [None]
  - TONSILLAR INFLAMMATION [None]
  - GASTROOESOPHAGEAL REFLUX DISEASE [None]
  - INJECTION SITE PAIN [None]
  - LETHARGY [None]
  - FATIGUE [None]
  - SPEECH DISORDER [None]
  - INJECTION SITE ERYTHEMA [None]
  - INFECTION [None]
  - OBSTRUCTIVE AIRWAYS DISORDER [None]
  - BLOOD POTASSIUM DECREASED [None]
